FAERS Safety Report 9155694 (Version 1)
Quarter: 2013Q1

REPORT INFORMATION
  Report Type: Spontaneous
  Country: GB (occurrence: GB)
  Receive Date: 20130311
  Receipt Date: 20130311
  Transmission Date: 20140127
  Serious: Yes (Other)
  Sender: FDA-Public Use
  Company Number: PHHY2013GB021511

PATIENT
  Age: 67 Year
  Sex: Female
  Weight: 65.5 kg

DRUGS (7)
  1. CLARITHROMYCIN [Suspect]
     Indication: LOWER RESPIRATORY TRACT INFECTION
     Dates: start: 20130206, end: 20130220
  2. DOSULEPIN [Concomitant]
     Dates: start: 20121031, end: 20130221
  3. LANSOPRAZOLE [Concomitant]
     Dates: start: 20121031, end: 20130221
  4. PERINDOPRIL ERBUMINE [Concomitant]
     Dates: start: 20121031
  5. SERETIDE [Concomitant]
     Dates: start: 20121031
  6. MEBEVERINE HYDROCHLORIDE [Concomitant]
     Dates: start: 20121204, end: 20130221
  7. SALBUTAMOL [Concomitant]
     Dates: start: 20130124, end: 20130221

REACTIONS (2)
  - Pressure of speech [Recovered/Resolved]
  - Poor quality sleep [Unknown]
